FAERS Safety Report 4898200-X (Version None)
Quarter: 2006Q1

REPORT INFORMATION
  Report Type: 
  Country: None (occurrence: None)
  Receive Date: 20060201
  Receipt Date: 20060127
  Transmission Date: 20060701
  Serious: Yes (Death, Other)
  Sender: FDA-Public Use
  Company Number: US-MERCK-0601USA03466

PATIENT
  Age: 66 Year
  Sex: Female
  Weight: 73 kg

DRUGS (5)
  1. VIOXX [Suspect]
     Indication: RHEUMATOID ARTHRITIS
     Route: 048
     Dates: start: 20000101, end: 20040901
  2. CELEBREX [Concomitant]
     Route: 065
  3. PREDNISONE [Concomitant]
     Route: 065
  4. PREMARIN [Concomitant]
     Route: 065
  5. COMBIVENT [Concomitant]
     Route: 065

REACTIONS (3)
  - CARDIAC DISORDER [None]
  - DEATH [None]
  - MYOCARDIAL INFARCTION [None]
